FAERS Safety Report 21260125 (Version 1)
Quarter: 2022Q3

REPORT INFORMATION
  Report Type: Spontaneous
  Country: US (occurrence: None)
  Receive Date: 20220824
  Receipt Date: 20220824
  Transmission Date: 20221027
  Serious: Yes (unspecified)
  Sender: FDA-Public Use
  Company Number: None

PATIENT
  Age: 32 Year
  Sex: Female
  Weight: 65.5 kg

DRUGS (1)
  1. STELARA [Suspect]
     Active Substance: USTEKINUMAB
     Dates: start: 20220823

REACTIONS (5)
  - Chest discomfort [None]
  - Dyspnoea [None]
  - Feeling abnormal [None]
  - Anxiety [None]
  - Emotional disorder [None]

NARRATIVE: CASE EVENT DATE: 20220823
